FAERS Safety Report 20875432 (Version 1)
Quarter: 2022Q2

REPORT INFORMATION
  Report Type: Spontaneous
  Country: US (occurrence: US)
  Receive Date: 20220526
  Receipt Date: 20220526
  Transmission Date: 20220721
  Serious: Yes (Hospitalization, Other)
  Sender: FDA-Public Use
  Company Number: None

PATIENT
  Age: 70 Year
  Sex: Female

DRUGS (1)
  1. VANCOMYCIN [Suspect]
     Active Substance: VANCOMYCIN
     Indication: Cellulitis
     Dosage: UNK
     Route: 065

REACTIONS (4)
  - Henoch-Schonlein purpura [Recovered/Resolved]
  - Condition aggravated [Recovered/Resolved]
  - Renal impairment [Recovered/Resolved]
  - IgA nephropathy [Recovered/Resolved]
